FAERS Safety Report 10219877 (Version 2)
Quarter: 2014Q2

REPORT INFORMATION
  Report Type: Spontaneous
  Country: US (occurrence: US)
  Receive Date: 20140605
  Receipt Date: 20140616
  Transmission Date: 20141212
  Serious: Yes (Hospitalization)
  Sender: FDA-Public Use
  Company Number: US-GLAXOSMITHKLINE-A1075298A

PATIENT
  Sex: Female

DRUGS (13)
  1. ADVAIR HFA [Suspect]
     Indication: CHRONIC OBSTRUCTIVE PULMONARY DISEASE
     Dosage: 1PUFF TWICE PER DAY
     Route: 055
     Dates: end: 201405
  2. VENTOLIN [Suspect]
     Indication: CHRONIC OBSTRUCTIVE PULMONARY DISEASE
     Dosage: 2PUFF AS REQUIRED
     Route: 055
  3. SPIRIVA [Concomitant]
  4. CRESTOR [Concomitant]
  5. NIFEDIPINE [Concomitant]
  6. DALIRESP [Concomitant]
  7. HUMALOG [Concomitant]
  8. LISINOPRIL [Concomitant]
  9. GLIMEPIRIDE [Concomitant]
  10. PREDNISONE [Concomitant]
  11. METFORMIN [Concomitant]
  12. NITROGLYCERIN PATCH [Concomitant]
  13. OXYGEN [Concomitant]

REACTIONS (3)
  - Respiratory failure [Recovered/Resolved]
  - Pneumonia [Recovered/Resolved]
  - Impaired work ability [Unknown]
